FAERS Safety Report 9301055 (Version 1)
Quarter: 2013Q2

REPORT INFORMATION
  Report Type: Spontaneous
  Country: US (occurrence: US)
  Receive Date: 20130521
  Receipt Date: 20130521
  Transmission Date: 20140414
  Serious: No
  Sender: FDA-Public Use
  Company Number: US-PFIZER INC-2013152161

PATIENT
  Sex: Female
  Weight: 60.77 kg

DRUGS (12)
  1. FLAGYL [Suspect]
     Dosage: UNK
  2. CODEINE [Suspect]
     Dosage: UNK
  3. BACTRIM [Suspect]
     Dosage: UNK
  4. LEVAQUIN [Suspect]
     Dosage: UNK
  5. CIPRO [Suspect]
     Dosage: UNK
  6. LIPASE [Suspect]
     Dosage: UNK
  7. XANAX [Concomitant]
     Indication: ANXIETY
     Dosage: 1 MG, 2X/DAY
  8. ZEBETA [Concomitant]
     Dosage: 5 MG, 1X/DAY
  9. VITAMIN D [Concomitant]
     Dosage: UNK
  10. VITAMIN E [Concomitant]
     Dosage: UNK
  11. PROBIOTIC [Concomitant]
     Dosage: UNK
  12. MULTIVITAMINS [Concomitant]

REACTIONS (1)
  - Drug hypersensitivity [Unknown]
